FAERS Safety Report 6737387-0 (Version None)
Quarter: 2010Q2

REPORT INFORMATION
  Report Type: 
  Country: None (occurrence: None)
  Receive Date: 20100524
  Receipt Date: 20100517
  Transmission Date: 20101027
  Serious: Yes (Hospitalization)
  Sender: FDA-Public Use
  Company Number: FR-JNJFOC-20100506264

PATIENT
  Sex: Male

DRUGS (4)
  1. HALDOL [Suspect]
     Indication: SEDATION
     Dosage: (HALOPERIDOL, INJECTION, INTRAVENOUS,48 ML A DAY) , 2 ML / HOUR)
     Route: 042
  2. NEXIUM [Suspect]
     Indication: PROPHYLAXIS AGAINST GASTROINTESTINAL ULCER
     Route: 042
  3. TAZOCILLINE [Suspect]
     Indication: INFECTION
     Route: 042
  4. NORADRENALINE [Suspect]
     Indication: HYPOTENSION
     Route: 042

REACTIONS (9)
  - AGRANULOCYTOSIS [None]
  - CYTOLYTIC HEPATITIS [None]
  - INCORRECT ROUTE OF DRUG ADMINISTRATION [None]
  - PROTEUS TEST POSITIVE [None]
  - PULMONARY HYPERTENSION [None]
  - RENAL FAILURE [None]
  - RESPIRATORY DISORDER [None]
  - RIGHT VENTRICULAR FAILURE [None]
  - SEPSIS [None]
